FAERS Safety Report 13071757 (Version 1)
Quarter: 2016Q4

REPORT INFORMATION
  Report Type: Spontaneous
  Country: US (occurrence: US)
  Receive Date: 20161228
  Receipt Date: 20161228
  Transmission Date: 20170207
  Serious: No
  Sender: FDA-Public Use
  Company Number: None

PATIENT
  Age: 63 Year
  Sex: Male

DRUGS (1)
  1. RIBAVIRIN CAP 200MG [Suspect]
     Active Substance: RIBAVIRIN
     Indication: PULMONARY ARTERIAL HYPERTENSION
     Dosage: 4000 MG BID QD

REACTIONS (2)
  - Vomiting [None]
  - Drug dose omission [None]

NARRATIVE: CASE EVENT DATE: 20161207
